FAERS Safety Report 8739771 (Version 4)
Quarter: 2013Q1

REPORT INFORMATION
  Report Type: Report from Study
  Country: US (occurrence: US)
  Receive Date: 20120823
  Receipt Date: 20130222
  Transmission Date: 20140127
  Serious: Yes (Life-Threatening, Hospitalization)
  Sender: FDA-Public Use
  Company Number: US-MERCK-1206USA03021

PATIENT
  Age: 4 Year
  Sex: Male
  Weight: 16 kg

DRUGS (3)
  1. VORINOSTAT [Suspect]
     Indication: BRAIN STEM GLIOMA
     Dosage: 230 MG/M2, ON DAYS1-5 WEEKLY
     Route: 048
     Dates: start: 20120328, end: 20120508
  2. VORINOSTAT [Suspect]
     Dosage: 230 MG/M2,ON DAYS 1-5 WEEKLY
     Route: 048
     Dates: start: 20120809, end: 20120810
  3. VORINOSTAT [Suspect]
     Dosage: 230 MG/M2/DOSE PO ON DAYS 1-5 WEEKLY
     Route: 048
     Dates: start: 20121129, end: 20121226

REACTIONS (6)
  - Lymphocyte count decreased [Not Recovered/Not Resolved]
  - Dehydration [Recovered/Resolved]
  - Upper respiratory tract infection [Recovered/Resolved]
  - Depressed level of consciousness [Recovering/Resolving]
  - Hydrocephalus [Recovering/Resolving]
  - Somnolence [Recovering/Resolving]
